FAERS Safety Report 16392203 (Version 1)
Quarter: 2019Q2

REPORT INFORMATION
  Report Type: Spontaneous
  Country: US (occurrence: US)
  Receive Date: 20190605
  Receipt Date: 20190605
  Transmission Date: 20190711
  Serious: No
  Sender: FDA-Public Use
  Company Number: US-ROCHE-2286366

PATIENT
  Age: 25 Year
  Sex: Female

DRUGS (2)
  1. OCREVUS [Suspect]
     Active Substance: OCRELIZUMAB
     Indication: MULTIPLE SCLEROSIS
     Route: 042
     Dates: start: 20180720, end: 20180821
  2. OCREVUS [Suspect]
     Active Substance: OCRELIZUMAB
     Dosage: FULL DOSE NOT ADMINISTERED ;ONGOING: YES
     Route: 042
     Dates: start: 20190219

REACTIONS (6)
  - Throat tightness [Recovered/Resolved]
  - Dizziness [Recovered/Resolved]
  - White blood cell count decreased [Recovered/Resolved]
  - Heart rate increased [Recovered/Resolved]
  - Throat irritation [Recovered/Resolved]
  - Muscular weakness [Recovered/Resolved]

NARRATIVE: CASE EVENT DATE: 20180725
